FAERS Safety Report 6998559-3 (Version None)
Quarter: 2010Q3

REPORT INFORMATION
  Report Type: 
  Country: None (occurrence: None)
  Receive Date: 20100920
  Receipt Date: 20090910
  Transmission Date: 20110219
  Serious: Yes (Other)
  Sender: FDA-Public Use
  Company Number: US-ASTRAZENECA-2009SE12504

PATIENT
  Age: 53 Year
  Sex: Female
  Weight: 78 kg

DRUGS (11)
  1. SEROQUEL [Suspect]
     Route: 048
     Dates: start: 20070817, end: 20090801
  2. SEROQUEL [Suspect]
     Route: 048
     Dates: end: 20090101
  3. RITALIN [Concomitant]
  4. GENERIC ALLEGRA [Concomitant]
     Indication: MULTIPLE ALLERGIES
  5. GENERIC MOBIC [Concomitant]
     Indication: ARTHRALGIA
  6. GENERIC SYNTHYROID [Concomitant]
     Indication: HYPOTHYROIDISM
  7. ASTELIN [Concomitant]
     Indication: MULTIPLE ALLERGIES
  8. TRAMADOL [Concomitant]
     Indication: PAIN
  9. LOESTRIN 1.5/30 [Concomitant]
     Indication: CONTRACEPTION
  10. TYLENOL [Concomitant]
     Indication: PAIN
  11. SUPPLEMENTS [Concomitant]

REACTIONS (17)
  - AFFECT LABILITY [None]
  - ASTHENIA [None]
  - CONSTIPATION [None]
  - DIZZINESS [None]
  - DRY MOUTH [None]
  - FOOD CRAVING [None]
  - HEADACHE [None]
  - HEPATIC ENZYME INCREASED [None]
  - HYPERPHAGIA [None]
  - ILL-DEFINED DISORDER [None]
  - INSOMNIA [None]
  - LETHARGY [None]
  - LOGORRHOEA [None]
  - MANIA [None]
  - NASAL CONGESTION [None]
  - SUICIDAL IDEATION [None]
  - WEIGHT INCREASED [None]
